FAERS Safety Report 5589478-8 (Version None)
Quarter: 2008Q1

REPORT INFORMATION
  Report Type: 
  Country: None (occurrence: None)
  Receive Date: 20080109
  Receipt Date: 20071227
  Transmission Date: 20080703
  Serious: Yes (Hospitalization)
  Sender: FDA-Public Use
  Company Number: S08-ITA-00027-01

PATIENT
  Age: 85 Year
  Sex: Male

DRUGS (6)
  1. ELOPRAM DROPS (CITALOPRAM HYDROCHLORIDE) [Suspect]
     Indication: DEPRESSION
     Dosage: 5 DROPS QD PO
     Route: 048
     Dates: start: 20070912, end: 20071019
  2. MELATONIN [Concomitant]
  3. PROMAZINE HYDROCHLORIDE [Concomitant]
  4. FOLIN (FOLIC ACID) [Concomitant]
  5. PANTORC (PANTOPRAZOLE SODIUM) [Concomitant]
  6. PANTETINA/CARNITINA/CIPROEPTADINA ( CARPANTIN) [Concomitant]

REACTIONS (3)
  - ANAEMIA [None]
  - HAEMATURIA [None]
  - MELAENA [None]
